FAERS Safety Report 15377142 (Version 1)
Quarter: 2018Q3

REPORT INFORMATION
  Report Type: Spontaneous
  Country: US (occurrence: US)
  Receive Date: 20180905
  Receipt Date: 20180905
  Transmission Date: 20181010
  Serious: Yes (Disabling)
  Sender: FDA-Public Use
  Company Number: None

PATIENT
  Age: 46 Year
  Sex: Female
  Weight: 87.75 kg

DRUGS (2)
  1. NATURE?THROID [Suspect]
     Active Substance: THYROID, PORCINE
     Indication: HYPERTHYROIDISM
     Dosage: ?          QUANTITY:1 DF DOSAGE FORM;?
     Route: 048
     Dates: start: 20180825, end: 20180829
  2. NATURE?THROID [Suspect]
     Active Substance: THYROID, PORCINE
     Indication: AUTOIMMUNE THYROIDITIS
     Dosage: ?          QUANTITY:1 DF DOSAGE FORM;?
     Route: 048
     Dates: start: 20180825, end: 20180829

REACTIONS (3)
  - Therapy change [None]
  - Gastrointestinal pain [None]
  - Diarrhoea [None]

NARRATIVE: CASE EVENT DATE: 20180829
